FAERS Safety Report 22381242 (Version 1)
Quarter: 2023Q2

REPORT INFORMATION
  Report Type: Spontaneous
  Country: US (occurrence: US)
  Receive Date: 20230530
  Receipt Date: 20230530
  Transmission Date: 20230721
  Serious: No
  Sender: FDA-Public Use
  Company Number: US-SA-SAC20230529000356

PATIENT
  Sex: Male

DRUGS (5)
  1. LUMIZYME [Suspect]
     Active Substance: ALGLUCOSIDASE ALFA
     Dosage: UNK, QM
  2. NEXVIAZYME [AVALGLUCOSIDASE ALFA] [Concomitant]
     Dosage: UNK
  3. PREDNISONE [Concomitant]
     Active Substance: PREDNISONE
     Dosage: PM BEFORE THE INFUSION AS WELL AS THE MORNING OF THE INFUSION
  4. HYDROCORTISONE [Concomitant]
     Active Substance: HYDROCORTISONE
     Dosage: UNK
     Route: 042
  5. BENADRYL [Concomitant]
     Active Substance: DIPHENHYDRAMINE HYDROCHLORIDE
     Dosage: UNK
     Route: 042

REACTIONS (4)
  - Anxiety [Unknown]
  - Drug hypersensitivity [Unknown]
  - Chest discomfort [Unknown]
  - Inappropriate schedule of product administration [Unknown]
